FAERS Safety Report 17953604 (Version 5)
Quarter: 2020Q3

REPORT INFORMATION
  Report Type: Spontaneous
  Country: DE (occurrence: DE)
  Receive Date: 20200628
  Receipt Date: 20200814
  Transmission Date: 20201103
  Serious: Yes (Hospitalization, Other)
  Sender: FDA-Public Use
  Company Number: DE-PFIZER INC-2020242868

PATIENT
  Sex: Male

DRUGS (1)
  1. CYTOTEC [Suspect]
     Active Substance: MISOPROSTOL
     Indication: LABOUR INDUCTION
     Dosage: 150 UG, TOTAL (THE EVENING BEFORE, FIRST 50?G AND THEN THE FOLLOWING MORNING 100?G CYTOTEC)
     Route: 064

REACTIONS (6)
  - Foetal distress syndrome [Recovered/Resolved]
  - Childhood asthma [Unknown]
  - Cough [Unknown]
  - Foetal heart rate decreased [Recovered/Resolved]
  - Foetal exposure during delivery [Unknown]
  - Pneumonia [Unknown]
